FAERS Safety Report 9223669 (Version 2)
Quarter: 2013Q2

REPORT INFORMATION
  Report Type: Spontaneous
  Country: ES (occurrence: ES)
  Receive Date: 20130410
  Receipt Date: 20130604
  Transmission Date: 20140414
  Serious: Yes (Death, Hospitalization)
  Sender: FDA-Public Use
  Company Number: ES-ELI_LILLY_AND_COMPANY-ES201304001607

PATIENT
  Age: 85 Year
  Sex: Female

DRUGS (1)
  1. FORSTEO [Suspect]
     Indication: OSTEOPOROSIS
     Dosage: 20 UG, QD
     Route: 058
     Dates: start: 20130313

REACTIONS (4)
  - Death [Fatal]
  - Post procedural infection [Unknown]
  - Urinary tract infection [Unknown]
  - Blood glucose abnormal [Unknown]
